FAERS Safety Report 9114616 (Version 1)
Quarter: 2013Q1

REPORT INFORMATION
  Report Type: Spontaneous
  Country: US (occurrence: None)
  Receive Date: 20130220
  Receipt Date: 20130220
  Transmission Date: 20140127
  Serious: Yes (Hospitalization)
  Sender: FDA-Public Use
  Company Number: None

PATIENT
  Age: 59 Year
  Sex: Female

DRUGS (8)
  1. ORENCIA [Suspect]
     Dosage: UNDER THE SKIN
     Dates: start: 20121115
  2. MISOPROSTOL [Concomitant]
  3. HYDROCODONE/APAP [Concomitant]
  4. AUGMENTIN [Concomitant]
  5. CELEBREX [Concomitant]
  6. SIMVASTAIN [Concomitant]
  7. VITAMIN D [Concomitant]
  8. RESTASIS [Concomitant]

REACTIONS (1)
  - Pharyngeal abscess [None]
